FAERS Safety Report 6071510-9 (Version None)
Quarter: 2009Q1

REPORT INFORMATION
  Report Type: 
  Country: None (occurrence: None)
  Receive Date: 20090206
  Receipt Date: 20090206
  Transmission Date: 20090719
  Serious: No
  Sender: FDA-Public Use
  Company Number: None

PATIENT
  Sex: Male

DRUGS (1)
  1. RISPERIDONE [Suspect]
     Dosage: 3 MG ONCE HS PO
     Route: 048
     Dates: start: 20081210, end: 20090107

REACTIONS (4)
  - AGGRESSION [None]
  - HALLUCINATION [None]
  - THERAPEUTIC RESPONSE UNEXPECTED WITH DRUG SUBSTITUTION [None]
  - VERBAL ABUSE [None]
